FAERS Safety Report 7070938-8 (Version None)
Quarter: 2010Q4

REPORT INFORMATION
  Report Type: 
  Country: None (occurrence: None)
  Receive Date: 20101027
  Receipt Date: 20101027
  Transmission Date: 20110411
  Serious: Yes (Hospitalization)
  Sender: FDA-Public Use
  Company Number: None

PATIENT
  Age: 9 Month
  Sex: Female
  Weight: 7.2576 kg

DRUGS (1)
  1. HYLANDS TEETHING TABLETS N/A HYLANDS [Suspect]
     Indication: TEETHING
     Dosage: 2 TABLETS TWICE A DAY PO
     Route: 048
     Dates: start: 20100104, end: 20100120

REACTIONS (4)
  - DECREASED APPETITE [None]
  - LETHARGY [None]
  - MALAISE [None]
  - PYREXIA [None]
